FAERS Safety Report 7315559-4 (Version None)
Quarter: 2011Q1

REPORT INFORMATION
  Report Type: 
  Country: None (occurrence: None)
  Receive Date: 20110218
  Receipt Date: 20110218
  Transmission Date: 20110831
  Serious: Yes (Hospitalization)
  Sender: FDA-Public Use
  Company Number: None

PATIENT
  Age: 23 Year
  Sex: Male

DRUGS (5)
  1. CLINDAMYCIN [Concomitant]
  2. BENADRYL [Concomitant]
  3. ADVIL LIQUI-GELS [Concomitant]
  4. TYLENOL [Concomitant]
  5. BACTRIM DS [Suspect]
     Indication: PYREXIA
     Dosage: ONE BID PO RECENT

REACTIONS (6)
  - PYREXIA [None]
  - RENAL FAILURE ACUTE [None]
  - ASTHENIA [None]
  - RASH [None]
  - EYE OEDEMA [None]
  - DEHYDRATION [None]
